FAERS Safety Report 5346914-X (Version None)
Quarter: 2007Q2

REPORT INFORMATION
  Report Type: 
  Country: None (occurrence: None)
  Receive Date: 20070430
  Receipt Date: 20070130
  Transmission Date: 20071010
  Serious: No
  Sender: FDA-Public Use
  Company Number: A-US2007-14395

PATIENT
  Age: 30 Year
  Sex: Female

DRUGS (1)
  1. VENTAVIS [Suspect]
     Indication: PULMONARY HYPERTENSION
     Dosage: 5 UG, 6 X A DAY, RESPIRATORY
     Route: 055
     Dates: start: 20070101

REACTIONS (1)
  - THROAT IRRITATION [None]
